FAERS Safety Report 8325091-7 (Version None)
Quarter: 2012Q2

REPORT INFORMATION
  Report Type: 
  Country: None (occurrence: None)
  Receive Date: 20120501
  Receipt Date: 20100329
  Transmission Date: 20120825
  Serious: No
  Sender: FDA-Public Use
  Company Number: US-TEVA-2010001829

PATIENT
  Age: 38 Year
  Sex: Female

DRUGS (5)
  1. OXYCONTIN [Concomitant]
  2. INSULIN [Concomitant]
  3. NUVIGIL [Suspect]
     Dosage: 250 MILLIGRAM;
     Route: 048
     Dates: start: 20100101
  4. METFORMIN HCL [Concomitant]
  5. LYRICA [Suspect]
     Dosage: 150 MILLIGRAM;
     Route: 048

REACTIONS (4)
  - MUSCLE SPASMS [None]
  - RASH [None]
  - PAIN IN EXTREMITY [None]
  - DRUG INTERACTION [None]
